FAERS Safety Report 25316822 (Version 3)
Quarter: 2025Q3

REPORT INFORMATION
  Report Type: Report from Study
  Country: CA (occurrence: CA)
  Receive Date: 20250515
  Receipt Date: 20250802
  Transmission Date: 20251021
  Serious: Yes (Other)
  Sender: ALEXION PHARMACEUTICALS
  Company Number: CA-AstraZeneca-CH-00858938A

PATIENT
  Sex: Female
  Weight: 13.6 kg

DRUGS (5)
  1. STRENSIQ [Suspect]
     Active Substance: ASFOTASE ALFA
     Indication: Hypophosphatasia
     Dosage: 20 MILLIGRAM, TIW
     Dates: start: 20230731, end: 2023
  2. STRENSIQ [Suspect]
     Active Substance: ASFOTASE ALFA
     Dosage: 24 MILLIGRAM, TIW
     Dates: start: 20231211
  3. STRENSIQ [Suspect]
     Active Substance: ASFOTASE ALFA
     Route: 065
  4. CALCIUM [Concomitant]
     Active Substance: CALCIUM
     Route: 065
  5. VITAMIN D [Concomitant]
     Active Substance: VITAMIN D NOS
     Route: 065

REACTIONS (2)
  - Pneumonia [Unknown]
  - Measles [Unknown]
